FAERS Safety Report 8014819-1 (Version None)
Quarter: 2011Q4

REPORT INFORMATION
  Report Type: 
  Country: None (occurrence: None)
  Receive Date: 20111229
  Receipt Date: 20111219
  Transmission Date: 20120403
  Serious: Yes (Other)
  Sender: FDA-Public Use
  Company Number: NO-BAUSCH-2011BL009044

PATIENT
  Age: 72 Year
  Sex: Male

DRUGS (8)
  1. PHENYLEPHRINE HCL [Suspect]
     Route: 031
  2. PHENYLEPHRINE HCL [Suspect]
     Indication: PREOPERATIVE CARE
     Route: 061
  3. DEXAMETHASONE [Suspect]
     Indication: PREOPERATIVE CARE
     Route: 061
  4. CEFUROXIME [Suspect]
     Indication: PREOPERATIVE CARE
     Route: 031
  5. LIDOCAINE [Suspect]
     Indication: PREOPERATIVE CARE
     Route: 031
  6. CYCLOPENTOLATE HCL [Suspect]
     Indication: PREOPERATIVE CARE
     Route: 061
  7. POVIDONE IODINE [Suspect]
     Indication: PREOPERATIVE CARE
     Route: 047
  8. DEXAMETHASONE [Suspect]
     Route: 061

REACTIONS (1)
  - ENDOPHTHALMITIS [None]
